FAERS Safety Report 4431522-5 (Version None)
Quarter: 2004Q3

REPORT INFORMATION
  Report Type: 
  Country: None (occurrence: None)
  Receive Date: 20040726
  Receipt Date: 20040408
  Transmission Date: 20050211
  Serious: No
  Sender: FDA-Public Use
  Company Number: USA040463983

PATIENT
  Age: 70 Year
  Sex: Female
  Weight: 68 kg

DRUGS (10)
  1. FORTEO [Suspect]
     Indication: OSTEOPOROSIS
     Dosage: 20 UG/1 DAY
     Dates: start: 20040324
  2. LISINOPRIL AND HYDROCHLOROTHIAZIDE [Concomitant]
  3. NORVASC [Concomitant]
  4. GLUCOSAMINE, CHONDROITIN, MSM [Concomitant]
  5. CALCIUM WITH VITAMIN D [Concomitant]
  6. SYNTHROID [Concomitant]
  7. VIOXX [Concomitant]
  8. FLUOXETINE HCL [Concomitant]
  9. MULTI-VITAMIN [Concomitant]
  10. TYLENOL [Concomitant]

REACTIONS (6)
  - HERPES SIMPLEX [None]
  - INJECTION SITE ERYTHEMA [None]
  - INJECTION SITE HAEMORRHAGE [None]
  - MUSCLE CRAMP [None]
  - PAIN IN EXTREMITY [None]
  - STOMACH DISCOMFORT [None]
